FAERS Safety Report 11326960 (Version 2)
Quarter: 2015Q3

REPORT INFORMATION
  Report Type: Spontaneous
  Country: US (occurrence: US)
  Receive Date: 20150731
  Receipt Date: 20150805
  Transmission Date: 20151125
  Serious: Yes (Hospitalization, Other)
  Sender: FDA-Public Use
  Company Number: US-PFIZER INC-2015252686

PATIENT
  Age: 13 Year
  Sex: Female
  Weight: 17 kg

DRUGS (18)
  1. LASIX [Suspect]
     Active Substance: FUROSEMIDE
     Dosage: 20 MG, 2X/DAY
     Dates: end: 20150713
  2. PREDNISONE. [Concomitant]
     Active Substance: PREDNISONE
     Dosage: 30 MG, UNK
  3. BACTRIM [Concomitant]
     Active Substance: SULFAMETHOXAZOLE\TRIMETHOPRIM
     Indication: IMMUNE SYSTEM DISORDER
     Dosage: 200/40 MG PER 5 ML, 7.5 ML, CYCLIC ON MONDAY, WEDNESDAY, AND FRIDAY
  4. PREDNISONE. [Concomitant]
     Active Substance: PREDNISONE
     Dosage: 40 MG, UNK
     Dates: start: 201505
  5. URSODIOL. [Concomitant]
     Active Substance: URSODIOL
     Indication: LIVER FUNCTION TEST ABNORMAL
     Dosage: 250 MG, 2X/DAY
     Dates: start: 201405
  6. PREDNISONE. [Concomitant]
     Active Substance: PREDNISONE
     Indication: HEPATITIS
     Dosage: 10 MG, 1X/DAY
  7. PREDNISONE. [Concomitant]
     Active Substance: PREDNISONE
     Dosage: 20 MG, UNK
     Dates: start: 201507
  8. AMILORIDE [Concomitant]
     Active Substance: AMILORIDE
     Indication: DIURETIC THERAPY
     Dosage: 2.5 MG, 2X/DAY
     Dates: end: 201506
  9. RAPAMUNE [Suspect]
     Active Substance: SIROLIMUS
     Dosage: 0.4 MG, 1X/DAY
  10. LASIX [Suspect]
     Active Substance: FUROSEMIDE
     Dosage: 20 MG, 3X/DAY
  11. CELLCEPT [Concomitant]
     Active Substance: MYCOPHENOLATE MOFETIL\MYCOPHENOLATE MOFETIL HYDROCHLORIDE
     Indication: LIVER FUNCTION TEST ABNORMAL
     Dosage: 250 MG, 2X/DAY
     Dates: start: 201505
  12. ZANTAC [Concomitant]
     Active Substance: RANITIDINE HYDROCHLORIDE
     Indication: GASTROOESOPHAGEAL REFLUX DISEASE
     Dosage: 75 MG, 2X/DAY
  13. VALCYTE [Concomitant]
     Active Substance: VALGANCICLOVIR HYDROCHLORIDE
     Indication: INFECTION PROPHYLAXIS
     Dosage: 450 MG, 1X/DAY
  14. AMILORIDE [Concomitant]
     Active Substance: AMILORIDE
     Indication: HYPERTENSION
     Dosage: 2.5 MG, 1X/DAY
  15. AMILORIDE [Concomitant]
     Active Substance: AMILORIDE
     Dosage: 2.5 MG, 2X/DAY
     Dates: start: 201507
  16. RAPAMUNE [Suspect]
     Active Substance: SIROLIMUS
     Indication: LIVER TRANSPLANT
     Dosage: 0.5 MG AND, ALTERNATE DAY, 1 MG
     Dates: start: 201305
  17. RAPAMUNE [Suspect]
     Active Substance: SIROLIMUS
     Dosage: 1 MG, ALTERNATE DAY
     Dates: start: 201305
  18. ENALAPRIL [Concomitant]
     Active Substance: ENALAPRIL
     Dosage: 2.5 MG, 2X/DAY
     Dates: start: 201506, end: 201507

REACTIONS (8)
  - Product use issue [Not Recovered/Not Resolved]
  - Post transplant lymphoproliferative disorder [Unknown]
  - Blood sodium abnormal [Unknown]
  - Oedema peripheral [Recovered/Resolved]
  - Liver function test abnormal [Recovered/Resolved]
  - Blood sodium abnormal [Unknown]
  - Ascites [Unknown]
  - Catatonia [Unknown]

NARRATIVE: CASE EVENT DATE: 201305
